FAERS Safety Report 9324638 (Version 1)
Quarter: 2013Q2

REPORT INFORMATION
  Report Type: Spontaneous
  Country: IT (occurrence: IT)
  Receive Date: 20130603
  Receipt Date: 20130603
  Transmission Date: 20140414
  Serious: Yes (Other)
  Sender: FDA-Public Use
  Company Number: IT-TEVA-408139ISR

PATIENT
  Age: 68 Year
  Sex: Female

DRUGS (5)
  1. CARBOPLATINO TEVA [Suspect]
     Indication: OVARIAN CANCER
     Dosage: 311.1MG, CYCLICAL
     Route: 042
     Dates: start: 20130121, end: 20130408
  2. CAELYX [Suspect]
     Dosage: 36MG, CYCLICAL; CONCENTRATE FOR SOLUTION FOR INTRAVENOUS INFUSION
     Route: 042
     Dates: start: 20130121, end: 20130408
  3. SOLDESAM [Concomitant]
     Dosage: 8 MILLIGRAM DAILY;
     Route: 042
     Dates: start: 20130121, end: 20130408
  4. RANIDIL [Concomitant]
     Dosage: 50 MILLIGRAM DAILY;
     Route: 042
     Dates: start: 20130121, end: 20130408
  5. ONDANSETRONE HIKMA [Concomitant]
     Dosage: 8 MILLIGRAM DAILY;
     Route: 042
     Dates: start: 20130121, end: 20130408

REACTIONS (5)
  - Abdominal pain [Recovering/Resolving]
  - Constipation [Recovering/Resolving]
  - Formication [Recovering/Resolving]
  - Asthenia [Recovering/Resolving]
  - Gait disturbance [Recovering/Resolving]
